FAERS Safety Report 4400849-5 (Version None)
Quarter: 2004Q3

REPORT INFORMATION
  Report Type: 
  Country: None (occurrence: None)
  Receive Date: 20040907
  Receipt Date: 20030703
  Transmission Date: 20050211
  Serious: No
  Sender: FDA-Public Use
  Company Number: US-BRISTOL-MYERS SQUIBB COMPANY-12317194

PATIENT
  Age: 83 Year
  Sex: Female
  Weight: 84 kg

DRUGS (8)
  1. COUMADIN [Suspect]
     Indication: THROMBOSIS
     Dosage: DOSE VALUE: ^ 2 OR 2.5 MG.^   DURATION:  2 TO 3 MONTHS.
     Route: 048
  2. BEXTRA [Suspect]
  3. STELAZINE [Concomitant]
  4. FLONASE [Concomitant]
  5. BLOOD PRESSURE MEDICATION [Concomitant]
  6. DIURETIC [Concomitant]
  7. EYE DROPS [Concomitant]
     Indication: GLAUCOMA
  8. TYLENOL [Concomitant]

REACTIONS (3)
  - CONTUSION [None]
  - OEDEMA PERIPHERAL [None]
  - PAIN IN EXTREMITY [None]
